FAERS Safety Report 8185626-4 (Version None)
Quarter: 2012Q1

REPORT INFORMATION
  Report Type: 
  Country: None (occurrence: None)
  Receive Date: 20120305
  Receipt Date: 20120301
  Transmission Date: 20120608
  Serious: Yes (Hospitalization, Congenital Anomaly, Other)
  Sender: FDA-Public Use
  Company Number: US-PFIZER INC-2012042528

PATIENT
  Sex: Male
  Weight: 36.281 kg

DRUGS (1)
  1. ZOLOFT [Suspect]
     Indication: DEPRESSION
     Dosage: 100 MG, 3X/DAY
     Route: 064
     Dates: start: 19990101, end: 20010901

REACTIONS (5)
  - CONVULSION [None]
  - SKULL MALFORMATION [None]
  - CLEFT PALATE [None]
  - MATERNAL EXPOSURE TIMING UNSPECIFIED [None]
  - EYE DISORDER [None]
